FAERS Safety Report 17980763 (Version 1)
Quarter: 2020Q3

REPORT INFORMATION
  Report Type: Spontaneous
  Country: CA (occurrence: CA)
  Receive Date: 20200704
  Receipt Date: 20200704
  Transmission Date: 20201103
  Serious: Yes (Other)
  Sender: FDA-Public Use
  Company Number: CA-ACCORD-188366

PATIENT
  Age: 56 Year
  Sex: Female

DRUGS (2)
  1. MOBICOX [Concomitant]
     Active Substance: MELOXICAM
     Dosage: 1 EVERY 1 DAYS
  2. METHOTREXATE. [Suspect]
     Active Substance: METHOTREXATE
     Indication: RHEUMATOID ARTHRITIS

REACTIONS (4)
  - Alopecia [Unknown]
  - Drug intolerance [Unknown]
  - Herpes zoster [Unknown]
  - Muscle disorder [Unknown]
